FAERS Safety Report 5193673-X (Version None)
Quarter: 2006Q4

REPORT INFORMATION
  Report Type: 
  Country: None (occurrence: None)
  Receive Date: 20061221
  Receipt Date: 20061215
  Transmission Date: 20070319
  Serious: Yes (Hospitalization)
  Sender: FDA-Public Use
  Company Number: S06-USA-05277-01

PATIENT
  Age: 54 Year
  Sex: Female

DRUGS (4)
  1. LEVOTHROID [Suspect]
     Indication: HYPOTHYROIDISM
     Dosage: 137 MCG QD PO
     Route: 048
     Dates: start: 19970101
  2. CYTOMEL [Concomitant]
  3. NEXIUM [Concomitant]
  4. CELEBREX [Concomitant]

REACTIONS (1)
  - HEART RATE INCREASED [None]
